FAERS Safety Report 16124233 (Version 1)
Quarter: 2019Q1

REPORT INFORMATION
  Report Type: Spontaneous
  Country: GB (occurrence: FR)
  Receive Date: 20190327
  Receipt Date: 20190327
  Transmission Date: 20190418
  Serious: Yes (Death, Life-Threatening, Hospitalization)
  Sender: FDA-Public Use
  Company Number: FR-FRESENIUS KABI-FK201903027

PATIENT
  Age: 71 Year
  Sex: Male

DRUGS (5)
  1. METRONIDAZOLE BENZOATE [Interacting]
     Active Substance: METRONIDAZOLE BENZOATE
     Indication: URINARY TRACT INFECTION
     Route: 042
     Dates: start: 20170606, end: 20170613
  2. SULFAMETHOXAZOLE/TRIMETHOPRIM [Interacting]
     Active Substance: SULFAMETHOXAZOLE\TRIMETHOPRIM
     Indication: URINARY TRACT INFECTION
     Route: 042
     Dates: start: 20170609, end: 20170617
  3. WARFARIN SODIUM. [Interacting]
     Active Substance: WARFARIN SODIUM
     Indication: AORTIC VALVE REPLACEMENT
     Route: 048
     Dates: start: 201410, end: 20170613
  4. CLINDAMYCIN. [Suspect]
     Active Substance: CLINDAMYCIN
     Indication: URINARY TRACT INFECTION
     Route: 030
     Dates: start: 20170609, end: 20170617
  5. CEFTRIAXONE SODIUM. [Concomitant]
     Active Substance: CEFTRIAXONE SODIUM
     Indication: URINARY TRACT INFECTION
     Route: 042
     Dates: start: 20170605, end: 20170608

REACTIONS (2)
  - International normalised ratio increased [Unknown]
  - Cerebral haemorrhage [Fatal]

NARRATIVE: CASE EVENT DATE: 20170613
